FAERS Safety Report 9252826 (Version 1)
Quarter: 2013Q1

REPORT INFORMATION
  Report Type: Spontaneous
  Country: US (occurrence: None)
  Receive Date: 20130305
  Receipt Date: 20130305
  Transmission Date: 20140127
  Serious: Yes (Other)
  Sender: FDA-Public Use
  Company Number: 163-21880-12082186

PATIENT
  Age: 79 Year
  Sex: Male
  Weight: 72.58 kg

DRUGS (15)
  1. REVLIMID [Suspect]
     Indication: PLASMA CELL MYELOMA
     Dosage: 20 MG, 21 IN 21 D
     Route: 048
     Dates: start: 20120203
  2. AREDIA (PAMIDRONATE DISODIUM) [Concomitant]
  3. ATORVASTATIN (ATORVASTATIN) [Concomitant]
  4. CALCIUM + D (OS-CAL) [Concomitant]
  5. CLONAZEPAM (CLONAZEPAM) (CLONAZEPAM) [Concomitant]
  6. GABAPENTIN (GABAPENTIN) [Concomitant]
  7. HYDROCHLOROTHIAZIDE (HYDROHLOROTHIAZIDE) [Concomitant]
  8. LEVOTHYROXINE (LEVOTHYROXINE) [Concomitant]
  9. METAMUCIL (PSYLLIUM) [Concomitant]
  10. VITAMINS [Concomitant]
  11. STOOL SOFTENER (DOCUSATE SODIUM) [Concomitant]
  12. VALACICLOVIR (VALACICLOVIR) [Concomitant]
  13. VESICARE (SOLIFENACIN SUCCINATE) [Concomitant]
  14. VITAMIN D (ERGOCALCIFEROL) [Concomitant]
  15. ASA (ACETYLSALICYLIC ACID) [Concomitant]

REACTIONS (1)
  - Deep vein thrombosis [None]
